FAERS Safety Report 18044472 (Version 1)
Quarter: 2020Q3

REPORT INFORMATION
  Report Type: Other
  Country: CA (occurrence: CA)
  Receive Date: 20200720
  Receipt Date: 20200720
  Transmission Date: 20201103
  Serious: Yes (Other)
  Sender: FDA-Public Use
  Company Number: CA-BECTON DICKINSON-2020BDN00186

PATIENT
  Age: 42 Year
  Sex: Female

DRUGS (23)
  1. ORENCIA [Suspect]
     Active Substance: ABATACEPT
     Dosage: CYCLICAL
  2. HYDROXYCHLOROQUINE [Concomitant]
     Active Substance: HYDROXYCHLOROQUINE
  3. IBUPROFEN. [Concomitant]
     Active Substance: IBUPROFEN
  4. PANTOPRAZOLE [Concomitant]
     Active Substance: PANTOPRAZOLE
  5. PREDNISONE. [Concomitant]
     Active Substance: PREDNISONE
  6. ZOPICLONE [Concomitant]
     Active Substance: ZOPICLONE
  7. ACTEMRA [Suspect]
     Active Substance: TOCILIZUMAB
  8. CIMZIA [Suspect]
     Active Substance: CERTOLIZUMAB PEGOL
     Indication: RHEUMATOID ARTHRITIS
     Dosage: 400 MG, CYCLICAL
     Route: 058
  9. ENBREL [Suspect]
     Active Substance: ETANERCEPT
     Indication: RHEUMATOID ARTHRITIS
     Dosage: CYCLICAL
  10. OXYCODONE TEREPHTHALATE [Suspect]
     Active Substance: OXYCODONE TEREPHTHALATE
     Dosage: CYCLICAL
  11. SIMPONI [Suspect]
     Active Substance: GOLIMUMAB
     Dosage: CYCLICAL
     Route: 058
  12. REACTINE [Concomitant]
  13. ERGOCALCIFEROL. [Concomitant]
     Active Substance: ERGOCALCIFEROL
  14. LEFLUNOMIDE. [Suspect]
     Active Substance: LEFLUNOMIDE
     Dosage: CYCLICAL
  15. METHOTREXATE. [Suspect]
     Active Substance: METHOTREXATE
     Dosage: CYCLICAL
  16. DESOGESTREL/ETHINYL ESTRADIOL [Concomitant]
     Active Substance: DESOGESTREL\ETHINYL ESTRADIOL
  17. VENTOLIN [Concomitant]
     Active Substance: ALBUTEROL SULFATE
  18. VITAMIN C [Concomitant]
     Active Substance: ASCORBIC ACID
  19. ACETAMINOPHEN. [Suspect]
     Active Substance: ACETAMINOPHEN
  20. TYLENOL [Concomitant]
     Active Substance: ACETAMINOPHEN
  21. CHLORAPREP [Suspect]
     Active Substance: CHLORHEXIDINE GLUCONATE\ISOPROPYL ALCOHOL
     Route: 061
  22. OXYCODONE [Suspect]
     Active Substance: OXYCODONE
     Dosage: CYCLICAL
  23. ARAVA [Concomitant]
     Active Substance: LEFLUNOMIDE

REACTIONS (20)
  - Night sweats [Unknown]
  - Ear pain [Unknown]
  - Pruritus [Unknown]
  - Asthenia [Unknown]
  - Rash [Unknown]
  - Body temperature increased [Unknown]
  - Insomnia [Unknown]
  - Muscle spasticity [Unknown]
  - Pain [Unknown]
  - Abdominal pain upper [Unknown]
  - Lower respiratory tract infection [Unknown]
  - Peripheral swelling [Unknown]
  - Back pain [Unknown]
  - Diarrhoea [Unknown]
  - Headache [Unknown]
  - Urticaria [Unknown]
  - Respiratory disorder [Unknown]
  - Vomiting [Unknown]
  - Joint swelling [Unknown]
  - Sinusitis [Unknown]
